FAERS Safety Report 15571546 (Version 2)
Quarter: 2019Q2

REPORT INFORMATION
  Report Type: Report from Study
  Country: CO (occurrence: CO)
  Receive Date: 20181031
  Receipt Date: 20190513
  Transmission Date: 20190711
  Serious: Yes (Hospitalization)
  Sender: FDA-Public Use
  Company Number: CO-ASTELLAS-2018US043627

PATIENT
  Age: 68 Year
  Sex: Female

DRUGS (5)
  1. OXYCODONE [Concomitant]
     Active Substance: OXYCODONE
     Indication: BACK PAIN
     Route: 048
     Dates: start: 201803, end: 201809
  2. TACROLIMUS. [Suspect]
     Active Substance: TACROLIMUS
     Indication: LIVER TRANSPLANT
     Route: 048
  3. PREGABALIN. [Concomitant]
     Active Substance: PREGABALIN
     Indication: BACK PAIN
     Route: 048
     Dates: start: 201803, end: 201809
  4. PROGRAF [Suspect]
     Active Substance: TACROLIMUS\TACROLIMUS ANHYDROUS
     Indication: LIVER TRANSPLANT
     Dosage: 2 MG, ONCE DAILY (2 CAPSULE OF 1 MG)
     Route: 048
     Dates: start: 20161014
  5. PROGRAF [Suspect]
     Active Substance: TACROLIMUS\TACROLIMUS ANHYDROUS
     Dosage: 2 MG, ONCE DAILY (2 CAPSULE OF 1 MG)
     Route: 048
     Dates: start: 20181022

REACTIONS (7)
  - Liver disorder [Recovered/Resolved]
  - Transaminases abnormal [Recovered/Resolved]
  - Upper limb fracture [Recovered/Resolved]
  - Haemoglobin increased [Recovered/Resolved]
  - Hip fracture [Recovered/Resolved]
  - Haemoglobin decreased [Unknown]
  - Fall [Recovered/Resolved]

NARRATIVE: CASE EVENT DATE: 20180925
